FAERS Safety Report 25378270 (Version 2)
Quarter: 2025Q2

REPORT INFORMATION
  Report Type: Spontaneous
  Country: TR (occurrence: TR)
  Receive Date: 20250530
  Receipt Date: 20250614
  Transmission Date: 20250717
  Serious: Yes (Other)
  Sender: MACLEODS
  Company Number: TR-MACLEODS PHARMA-MAC2025053254

PATIENT

DRUGS (5)
  1. DOXYCYCLINE [Suspect]
     Active Substance: DOXYCYCLINE
     Indication: Brucellosis
     Route: 048
  2. DOXYCYCLINE [Suspect]
     Active Substance: DOXYCYCLINE
     Indication: Intervertebral discitis
  3. DOXYCYCLINE [Suspect]
     Active Substance: DOXYCYCLINE
     Indication: Brucellosis
  4. RIFAMPIN [Concomitant]
     Active Substance: RIFAMPIN
     Route: 048
  5. RIFAMPIN [Concomitant]
     Active Substance: RIFAMPIN

REACTIONS (3)
  - Laryngitis [Recovered/Resolved]
  - Aphthous ulcer [Recovered/Resolved]
  - Oesophagitis [Recovered/Resolved]
